FAERS Safety Report 23712398 (Version 3)
Quarter: 2024Q2

REPORT INFORMATION
  Report Type: Spontaneous
  Country: US (occurrence: US)
  Receive Date: 20240405
  Receipt Date: 20240416
  Transmission Date: 20240716
  Serious: Yes (Other)
  Sender: FDA-Public Use
  Company Number: US-AMGEN-USASP2024066125

PATIENT
  Age: 60 Year
  Sex: Female

DRUGS (4)
  1. AIMOVIG [Suspect]
     Active Substance: ERENUMAB-AOOE
     Indication: Migraine
     Dosage: 140 MILLIGRAM, QMO
     Route: 065
     Dates: start: 20240330
  2. AVONEX [Concomitant]
     Active Substance: INTERFERON BETA-1A
     Indication: Multiple sclerosis
     Dosage: UNK
  3. AUBAGIO [Concomitant]
     Active Substance: TERIFLUNOMIDE
     Indication: Multiple sclerosis
  4. OCREVUS [Concomitant]
     Active Substance: OCRELIZUMAB
     Dosage: UNK

REACTIONS (6)
  - Multiple sclerosis [Unknown]
  - Migraine [Unknown]
  - Device difficult to use [Unknown]
  - Accidental exposure to product [Unknown]
  - Wrong technique in product usage process [Unknown]
  - Drug dose omission by device [Unknown]

NARRATIVE: CASE EVENT DATE: 20240101
